FAERS Safety Report 15226088 (Version 1)
Quarter: 2018Q3

REPORT INFORMATION
  Report Type: Spontaneous
  Country: US (occurrence: US)
  Receive Date: 20180706
  Receipt Date: 20180706
  Transmission Date: 20181010
  Serious: No
  Sender: FDA-Public Use
  Company Number: None

PATIENT
  Age: 91 Year
  Sex: Male
  Weight: 77.4 kg

DRUGS (2)
  1. CYCLOPHOSPHAMIDE 50MG CAPSULES [Concomitant]
     Active Substance: CYCLOPHOSPHAMIDE
     Dates: start: 20180215, end: 20180705
  2. CYCLOPHOSPHAMIDE. [Suspect]
     Active Substance: CYCLOPHOSPHAMIDE
     Route: 048
     Dates: start: 20180215, end: 20180705

REACTIONS (1)
  - Disease progression [None]
